FAERS Safety Report 4511365-4 (Version None)
Quarter: 2004Q4

REPORT INFORMATION
  Report Type: 
  Country: None (occurrence: None)
  Receive Date: 20041123
  Receipt Date: 20041123
  Transmission Date: 20050328
  Serious: No
  Sender: FDA-Public Use
  Company Number: None

PATIENT
  Sex: Female
  Weight: 82.8 kg

DRUGS (2)
  1. ENALAPRIL MALEATE [Suspect]
     Indication: CORONARY ARTERY DISEASE
     Dosage: 10 MG DAILY ORAL
     Route: 048
     Dates: start: 20040915, end: 20041028
  2. ENALAPRIL MALEATE [Suspect]
     Indication: HYPERTENSION
     Dosage: 10 MG DAILY ORAL
     Route: 048
     Dates: start: 20040915, end: 20041028

REACTIONS (1)
  - HYPERKALAEMIA [None]
